FAERS Safety Report 12600079 (Version 1)
Quarter: 2016Q3

REPORT INFORMATION
  Report Type: Spontaneous
  Country: CH (occurrence: GB)
  Receive Date: 20160727
  Receipt Date: 20160727
  Transmission Date: 20161109
  Serious: Yes (Hospitalization)
  Sender: FDA-Public Use
  Company Number: CH-LPDUSPRD-20160632

PATIENT
  Age: 29 Year
  Sex: Male

DRUGS (1)
  1. FERINJECT [Suspect]
     Active Substance: FERRIC CARBOXYMALTOSE
     Dosage: 1000 MG
     Route: 041
     Dates: start: 20160610, end: 20160610

REACTIONS (7)
  - Dizziness [Recovered/Resolved]
  - Abdominal pain [Recovered/Resolved]
  - Lethargy [Not Recovered/Not Resolved]
  - Myalgia [Recovered/Resolved]
  - Vomiting [Recovered/Resolved]
  - Off label use [Recovered/Resolved]
  - Nausea [Recovered/Resolved]

NARRATIVE: CASE EVENT DATE: 20160610
